FAERS Safety Report 4429143-3 (Version None)
Quarter: 2004Q3

REPORT INFORMATION
  Report Type: 
  Country: None (occurrence: None)
  Receive Date: 20040726
  Receipt Date: 20040310
  Transmission Date: 20050211
  Serious: No
  Sender: FDA-Public Use
  Company Number: USA040361656

PATIENT
  Age: 79 Year
  Sex: Female

DRUGS (6)
  1. FORTEO [Suspect]
     Indication: OSTEOPOROSIS
     Dosage: 20 UG DAY
     Dates: start: 20040224, end: 20040309
  2. PRAVACHOL [Concomitant]
  3. NORVASC (AMLODIPINE BESITLATE) [Concomitant]
  4. MONOPRIL [Concomitant]
  5. ASPIRIN [Concomitant]
  6. PREVACID [Concomitant]

REACTIONS (3)
  - CONFUSIONAL STATE [None]
  - DIZZINESS [None]
  - NAUSEA [None]
